FAERS Safety Report 10083688 (Version 1)
Quarter: 2014Q2

REPORT INFORMATION
  Report Type: Spontaneous
  Country: US (occurrence: US)
  Receive Date: 20140417
  Receipt Date: 20140417
  Transmission Date: 20141212
  Serious: No
  Sender: FDA-Public Use
  Company Number: US-PFIZER INC-2014106459

PATIENT
  Age: 64 Year
  Sex: Male
  Weight: 104.31 kg

DRUGS (4)
  1. CHANTIX [Suspect]
     Indication: SMOKING CESSATION THERAPY
     Dosage: 0.5 MG, DAILY
     Dates: start: 201206, end: 2012
  2. CHANTIX [Suspect]
     Dosage: 1 MG, 2X/DAY
     Dates: start: 2012
  3. CHANTIX [Suspect]
     Dosage: 1 MG, UNK
     Dates: start: 201403, end: 201403
  4. INSULIN [Concomitant]
     Indication: TYPE 1 DIABETES MELLITUS
     Dosage: UNK

REACTIONS (3)
  - Intentional product misuse [Unknown]
  - Insomnia [Recovered/Resolved]
  - Nausea [Recovered/Resolved]
